FAERS Safety Report 9105411 (Version 1)
Quarter: 2013Q1

REPORT INFORMATION
  Report Type: Spontaneous
  Country: US (occurrence: US)
  Receive Date: 20130220
  Receipt Date: 20130220
  Transmission Date: 20140127
  Serious: No
  Sender: FDA-Public Use
  Company Number: US-PFIZER INC-2013062945

PATIENT
  Age: 48 Year
  Sex: Female
  Weight: 71.66 kg

DRUGS (1)
  1. NEURONTIN [Suspect]
     Indication: NEUROPATHY PERIPHERAL
     Dosage: 300 MG, 3X/DAY
     Route: 048
     Dates: end: 201211

REACTIONS (3)
  - Pain in extremity [Unknown]
  - Blood glucose increased [Unknown]
  - Pain [Unknown]
